FAERS Safety Report 8854736 (Version 3)
Quarter: 2012Q4

REPORT INFORMATION
  Report Type: 
  Country: US (occurrence: US)
  Receive Date: 20121023
  Receipt Date: 20121116
  Transmission Date: 20130627
  Serious: Yes (Hospitalization, Disabling, Other)
  Sender: FDA-Public Use
  Company Number: US-009507513-1203USA03380

PATIENT

DRUGS (4)
  1. FOSAMAX [Suspect]
     Indication: OSTEOPENIA
     Dosage: 5 mg, UNK
     Route: 048
     Dates: start: 19991103, end: 20000215
  2. FOSAMAX [Suspect]
     Dosage: 10 mg, UNK
     Route: 048
     Dates: start: 20000215, end: 20001010
  3. FOSAMAX [Suspect]
     Dosage: 70 mg, qw
     Route: 048
     Dates: start: 20001010, end: 20080502
  4. FOSAMAX [Suspect]
     Indication: OSTEOPENIA
     Dosage: 70 mg, UNK
     Route: 048
     Dates: start: 20080502, end: 20100305

REACTIONS (39)
  - Femur fracture [Recovered/Resolved]
  - Open reduction of fracture [Unknown]
  - Bone density decreased [Unknown]
  - Osteoporosis [Unknown]
  - Stress fracture [Unknown]
  - Femur fracture [Unknown]
  - Blood cholesterol increased [Unknown]
  - Diverticulum [Unknown]
  - Iron deficiency anaemia [Unknown]
  - Haematochezia [Unknown]
  - Sick sinus syndrome [Unknown]
  - Vomiting [Unknown]
  - Diarrhoea [Unknown]
  - Fall [Unknown]
  - Cardiac murmur [Unknown]
  - Periorbital haemorrhage [Unknown]
  - Head injury [Unknown]
  - Lacunar infarction [Unknown]
  - Fatigue [Unknown]
  - Cardiomegaly [Unknown]
  - Left ventricular hypertrophy [Unknown]
  - Musculoskeletal pain [Unknown]
  - Aortic stenosis [Unknown]
  - Syncope [Unknown]
  - Anaemia of chronic disease [Unknown]
  - Coronary artery disease [Unknown]
  - Carotid artery disease [Unknown]
  - Arteriosclerosis [Unknown]
  - Transient ischaemic attack [Unknown]
  - Chest pain [Unknown]
  - Haemorrhagic anaemia [Unknown]
  - Cataract operation [Unknown]
  - Cerebrovascular accident [Unknown]
  - Cardiac failure congestive [Unknown]
  - Gastrooesophageal reflux disease [Unknown]
  - Heart valve replacement [Unknown]
  - Orthopaedic procedure [Unknown]
  - Hypersensitivity [Unknown]
  - Spinal column injury [Unknown]
